FAERS Safety Report 8347355-3 (Version None)
Quarter: 2012Q2

REPORT INFORMATION
  Report Type: 
  Country: None (occurrence: None)
  Receive Date: 20120509
  Receipt Date: 20120507
  Transmission Date: 20120825
  Serious: No
  Sender: FDA-Public Use
  Company Number: US-PFIZER INC-2012111731

PATIENT
  Sex: Female
  Weight: 58.1 kg

DRUGS (1)
  1. PREMARIN [Suspect]
     Indication: HORMONE THERAPY
     Dosage: UNK, FOUR DAYS A WEEK
     Route: 067
     Dates: end: 20120101

REACTIONS (2)
  - CIRCUMSTANCE OR INFORMATION CAPABLE OF LEADING TO MEDICATION ERROR [None]
  - HORMONE LEVEL ABNORMAL [None]
